FAERS Safety Report 20351027 (Version 1)
Quarter: 2022Q1

REPORT INFORMATION
  Report Type: Spontaneous
  Country: US (occurrence: None)
  Receive Date: 20220118
  Receipt Date: 20220118
  Transmission Date: 20220423
  Serious: Yes (Hospitalization)
  Sender: FDA-Public Use
  Company Number: None

PATIENT
  Age: 54 Year
  Sex: Male

DRUGS (8)
  1. CASIRIVIMAB\IMDEVIMAB [Suspect]
     Active Substance: CASIRIVIMAB\IMDEVIMAB
     Indication: COVID-19
     Dosage: OTHER FREQUENCY : ONCE;?
     Route: 058
     Dates: start: 20220103, end: 20220103
  2. coenzyme Q10 10 mg capsule [Concomitant]
  3. multivitamin (THERAGRAN) [Concomitant]
  4. turmeric 400 mg capsule [Concomitant]
  5. vit C/E/Zn/coppr/lutein/zeaxan (PRESERVISION AREDS-2 ORAL) [Concomitant]
  6. ibuprofen (AdviL) 200 mg tablet [Concomitant]
  7. amoxicillin (AMOXIL) 500 mg capsule [Concomitant]
  8. atorvastatin (LIPITOR) 20 mg tablet [Concomitant]

REACTIONS (2)
  - Pulmonary embolism [None]
  - Right ventricular dysfunction [None]

NARRATIVE: CASE EVENT DATE: 20220112
